FAERS Safety Report 18438977 (Version 1)
Quarter: 2020Q4

REPORT INFORMATION
  Report Type: Spontaneous
  Country: GB (occurrence: GB)
  Receive Date: 20201029
  Receipt Date: 20201029
  Transmission Date: 20210114
  Serious: Yes (Other)
  Sender: FDA-Public Use
  Company Number: GB-TEVA-2020-GB-1843615

PATIENT
  Age: 38 Year
  Sex: Female

DRUGS (6)
  1. CARBIMAZOLE [Suspect]
     Active Substance: CARBIMAZOLE
     Indication: HYPERTHYROIDISM
  2. CARBIMAZOLE [Suspect]
     Active Substance: CARBIMAZOLE
     Indication: BASEDOW^S DISEASE
     Route: 065
  3. LUGOL [Suspect]
     Active Substance: IODINE\POTASSIUM IODIDE
     Indication: HYPERTHYROIDISM
  4. PROPYLTHIOURACIL. [Suspect]
     Active Substance: PROPYLTHIOURACIL
     Indication: BASEDOW^S DISEASE
     Route: 065
  5. LUGOL [Suspect]
     Active Substance: IODINE\POTASSIUM IODIDE
     Indication: BASEDOW^S DISEASE
     Route: 065
  6. PROPYLTHIOURACIL. [Suspect]
     Active Substance: PROPYLTHIOURACIL
     Indication: HYPERTHYROIDISM

REACTIONS (4)
  - Iodine allergy [Recovered/Resolved]
  - Acute febrile neutrophilic dermatosis [Recovered/Resolved]
  - Dermatitis [Recovered/Resolved]
  - Neutropenia [Recovered/Resolved]
